FAERS Safety Report 7358971-X (Version None)
Quarter: 2011Q1

REPORT INFORMATION
  Report Type: 
  Country: None (occurrence: None)
  Receive Date: 20110310
  Receipt Date: 20110303
  Transmission Date: 20110831
  Serious: Yes (Death)
  Sender: FDA-Public Use
  Company Number: UTC-005521

PATIENT
  Age: 73 Year
  Sex: Female

DRUGS (3)
  1. COUMADIN [Concomitant]
  2. TYVASO [Suspect]
     Dosage: 72 MCG (18 MCG,4 IN 1 D), INHALATION
     Route: 055
  3. REVATIO (SILDENAFIL CIRATE) [Concomitant]

REACTIONS (1)
  - DEATH [None]
